FAERS Safety Report 9799566 (Version 2)
Quarter: 2015Q3

REPORT INFORMATION
  Report Type: Spontaneous
  Country: US (occurrence: US)
  Receive Date: 20140106
  Receipt Date: 20150806
  Transmission Date: 20151125
  Serious: No
  Sender: FDA-Public Use
  Company Number: US-GILEAD-2010-0030287

PATIENT
  Age: 66 Year
  Sex: Male

DRUGS (19)
  1. PROPECIA [Concomitant]
     Active Substance: FINASTERIDE
  2. DIOVAN [Concomitant]
     Active Substance: VALSARTAN
  3. ASTALIN [Concomitant]
     Active Substance: AZELASTINE HYDROCHLORIDE
  4. LETAIRIS [Suspect]
     Active Substance: AMBRISENTAN
     Indication: PULMONARY ARTERIAL HYPERTENSION
     Route: 048
     Dates: start: 20100512
  5. XOPENEX [Concomitant]
     Active Substance: LEVALBUTEROL HYDROCHLORIDE
  6. LEVOTHYROXINE. [Concomitant]
     Active Substance: LEVOTHYROXINE
  7. GLYBURIDE. [Concomitant]
     Active Substance: GLYBURIDE
  8. SINGULAIR [Concomitant]
     Active Substance: MONTELUKAST SODIUM
  9. ATORVASTATIN CALCIUM/AMLODIPINE BESILATE [Concomitant]
  10. SPIRONOLACTONE. [Concomitant]
     Active Substance: SPIRONOLACTONE
  11. OXYCODONE [Concomitant]
     Active Substance: OXYCODONE
  12. BUDEPRION [Concomitant]
     Active Substance: BUPROPION HYDROCHLORIDE
  13. GABAPENTIN. [Concomitant]
     Active Substance: GABAPENTIN
  14. PROPRANOLOL [Concomitant]
     Active Substance: PROPRANOLOL\PROPRANOLOL HYDROCHLORIDE
  15. BUMETANIDE. [Concomitant]
     Active Substance: BUMETANIDE
  16. NEXIUM [Concomitant]
     Active Substance: ESOMEPRAZOLE MAGNESIUM
  17. METHOCARBAMOL. [Concomitant]
     Active Substance: METHOCARBAMOL
  18. NIASPAN [Concomitant]
     Active Substance: NIACIN
  19. AMITRIPTYLINE [Concomitant]
     Active Substance: AMITRIPTYLINE

REACTIONS (2)
  - Pruritus [Not Recovered/Not Resolved]
  - Rash generalised [Not Recovered/Not Resolved]

NARRATIVE: CASE EVENT DATE: 20100702
